FAERS Safety Report 20306697 (Version 2)
Quarter: 2022Q1

REPORT INFORMATION
  Report Type: Spontaneous
  Country: ES (occurrence: ES)
  Receive Date: 20220106
  Receipt Date: 20220121
  Transmission Date: 20220424
  Serious: Yes (Death)
  Sender: FDA-Public Use
  Company Number: ES-TEVA-2021-ES-1995636

PATIENT
  Age: 42 Year
  Sex: Male

DRUGS (3)
  1. FLUDARABINE [Suspect]
     Active Substance: FLUDARABINE PHOSPHATE
     Indication: Acute megakaryocytic leukaemia
     Dosage: AS PART OF THE FLAG-IDA REGIMEN
     Route: 065
  2. CYTARABINE [Suspect]
     Active Substance: CYTARABINE
     Indication: Acute megakaryocytic leukaemia
     Dosage: AS PART OF THE 3+7 AND FLAG-IDA REGIMEN
     Route: 065
  3. IDARUBICIN [Suspect]
     Active Substance: IDARUBICIN
     Indication: Acute megakaryocytic leukaemia
     Dosage: AS PART OF THE 3+7 AND FLAG-IDA REGIMEN
     Route: 065

REACTIONS (1)
  - Drug ineffective [Fatal]
